FAERS Safety Report 21339248 (Version 1)
Quarter: 2022Q3

REPORT INFORMATION
  Report Type: Spontaneous
  Country: US (occurrence: US)
  Receive Date: 20220915
  Receipt Date: 20220915
  Transmission Date: 20221027
  Serious: Yes (Other)
  Sender: FDA-Public Use
  Company Number: US-GILEAD-2022-0597712

PATIENT
  Age: 51 Year
  Sex: Female
  Weight: 66.4 kg

DRUGS (1)
  1. TECARTUS [Suspect]
     Active Substance: BREXUCABTAGENE AUTOLEUCEL
     Indication: Acute lymphocytic leukaemia
     Dosage: UNK
     Route: 042
     Dates: start: 20220707, end: 20220707

REACTIONS (7)
  - Fatigue [Recovered/Resolved]
  - Cytokine release syndrome [Recovered/Resolved]
  - Cytokine release syndrome [Recovered/Resolved]
  - Malaise [Recovered/Resolved]
  - Tachycardia [Recovered/Resolved]
  - Fatigue [Unknown]
  - Rash [Recovered/Resolved]

NARRATIVE: CASE EVENT DATE: 20220719
